FAERS Safety Report 19974287 (Version 1)
Quarter: 2021Q4

REPORT INFORMATION
  Report Type: Spontaneous
  Country: US (occurrence: US)
  Receive Date: 20211020
  Receipt Date: 20211020
  Transmission Date: 20220303
  Serious: Yes (Other)
  Sender: FDA-Public Use
  Company Number: US-PFIZER INC-202101352804

PATIENT
  Age: 38 Year
  Sex: Female

DRUGS (1)
  1. XELJANZ [Suspect]
     Active Substance: TOFACITINIB CITRATE
     Dosage: 10 MG
     Dates: start: 20210714

REACTIONS (5)
  - Haematochezia [Unknown]
  - Faecal volume decreased [Unknown]
  - Change of bowel habit [Unknown]
  - Mucous stools [Unknown]
  - Therapeutic product effect incomplete [Unknown]
